FAERS Safety Report 8460734-9 (Version None)
Quarter: 2012Q2

REPORT INFORMATION
  Report Type: 
  Country: None (occurrence: None)
  Receive Date: 20120622
  Receipt Date: 20120612
  Transmission Date: 20120825
  Serious: Yes (Hospitalization)
  Sender: FDA-Public Use
  Company Number: SE-ELI_LILLY_AND_COMPANY-SE201206004585

PATIENT
  Age: 55 Year
  Sex: Female
  Weight: 110 kg

DRUGS (1)
  1. BYDUREON [Suspect]
     Indication: DIABETES MELLITUS
     Dosage: UNK, WEEKLY (1/W)

REACTIONS (5)
  - VOMITING [None]
  - INVESTIGATION [None]
  - NAUSEA [None]
  - CARDIAC FAILURE CONGESTIVE [None]
  - DIARRHOEA [None]
